FAERS Safety Report 8214913-6 (Version None)
Quarter: 2012Q1

REPORT INFORMATION
  Report Type: 
  Country: None (occurrence: None)
  Receive Date: 20120316
  Receipt Date: 20120312
  Transmission Date: 20120608
  Serious: Yes (Other)
  Sender: FDA-Public Use
  Company Number: CZ-BAYER-2012-024223

PATIENT
  Age: 75 Year
  Sex: Male

DRUGS (1)
  1. NEXAVAR [Suspect]
     Route: 048

REACTIONS (3)
  - ILEUS [None]
  - GASTROINTESTINAL INFLAMMATION [None]
  - COLONIC STENOSIS [None]
